FAERS Safety Report 14994251 (Version 3)
Quarter: 2018Q3

REPORT INFORMATION
  Report Type: Spontaneous
  Country: JP (occurrence: JP)
  Receive Date: 20180611
  Receipt Date: 20180704
  Transmission Date: 20181010
  Serious: Yes (Other)
  Sender: FDA-Public Use
  Company Number: JP-ROCHE-2135390

PATIENT
  Age: 58 Year
  Sex: Male
  Weight: 58.4 kg

DRUGS (5)
  1. TIOTROPIUM [Concomitant]
     Active Substance: TIOTROPIUM
     Indication: ASTHMA
     Dosage: UNK
     Route: 055
  2. FLUTIFORM [Concomitant]
     Active Substance: FLUTICASONE PROPIONATE\FORMOTEROL FUMARATE
     Dosage: 500 UG, BID
     Route: 055
  3. XOLAIR [Suspect]
     Active Substance: OMALIZUMAB
     Indication: ASTHMA
     Route: 058
     Dates: start: 201407
  4. FLUTIFORM [Concomitant]
     Active Substance: FLUTICASONE PROPIONATE\FORMOTEROL FUMARATE
     Indication: ASTHMA
     Route: 055
  5. XOLAIR [Suspect]
     Active Substance: OMALIZUMAB
     Route: 058
     Dates: start: 201601

REACTIONS (8)
  - Asthma [Unknown]
  - Chronic obstructive pulmonary disease [Unknown]
  - Nasal congestion [Unknown]
  - Otitis media [Unknown]
  - Allergic sinusitis [Unknown]
  - Deafness [Unknown]
  - Drug ineffective [Unknown]
  - Hyposmia [Unknown]
